FAERS Safety Report 7837365-4 (Version None)
Quarter: 2011Q4

REPORT INFORMATION
  Report Type: 
  Country: None (occurrence: None)
  Receive Date: 20111024
  Receipt Date: 20110916
  Transmission Date: 20120403
  Serious: No
  Sender: FDA-Public Use
  Company Number: US-ABBOTT-11P-163-0856783-00

PATIENT
  Sex: Female
  Weight: 90.8 kg

DRUGS (3)
  1. TOPAMAX [Concomitant]
     Indication: MIGRAINE
  2. ZYRTEC [Concomitant]
     Indication: HYPERSENSITIVITY
  3. LUPRON DEPOT [Suspect]
     Indication: ENDOMETRIOSIS
     Dosage: ONCE DOSE ONLY TAKEN
     Route: 050
     Dates: start: 20110823, end: 20110915

REACTIONS (2)
  - DRUG INEFFECTIVE [None]
  - ABDOMINAL PAIN [None]
